FAERS Safety Report 7949052-2 (Version None)
Quarter: 2011Q4

REPORT INFORMATION
  Report Type: 
  Country: None (occurrence: None)
  Receive Date: 20111125
  Receipt Date: 20110815
  Transmission Date: 20120403
  Serious: Yes (Life-Threatening)
  Sender: FDA-Public Use
  Company Number: 1005667

PATIENT
  Age: 64 Year
  Sex: Female
  Weight: 104.09 kg

DRUGS (1)
  1. FENTANYL CITRATE [Suspect]
     Indication: PAIN
     Dosage: 50 MCG X2, Q 1 HR, INTRAVENOUS (NOT OTHERWISE SPECIFIED)
     Route: 042

REACTIONS (5)
  - RESPIRATORY ARREST [None]
  - MIOSIS [None]
  - DEPRESSED LEVEL OF CONSCIOUSNESS [None]
  - APNOEA [None]
  - OXYGEN SATURATION DECREASED [None]
